FAERS Safety Report 21019998 (Version 2)
Quarter: 2022Q3

REPORT INFORMATION
  Report Type: Other
  Country: US (occurrence: US)
  Receive Date: 20220628
  Receipt Date: 20220804
  Transmission Date: 20221026
  Serious: Yes (Death)
  Sender: FDA-Public Use
  Company Number: US-MAYNE PHARMA-2022MYN000996

PATIENT

DRUGS (1)
  1. CLOZAPINE [Suspect]
     Active Substance: CLOZAPINE
     Indication: Parkinson^s disease psychosis
     Route: 065

REACTIONS (1)
  - Parkinson^s disease [Fatal]

NARRATIVE: CASE EVENT DATE: 20210311
